FAERS Safety Report 4820089-5 (Version None)
Quarter: 2005Q4

REPORT INFORMATION
  Report Type: 
  Country: None (occurrence: None)
  Receive Date: 20051103
  Receipt Date: 20051024
  Transmission Date: 20060501
  Serious: Yes (Hospitalization, Disabling, Other)
  Sender: FDA-Public Use
  Company Number: US-ABBOTT-05P-163-0315037-00

PATIENT
  Age: 3 Year
  Sex: Male
  Weight: 17.3 kg

DRUGS (23)
  1. SEVOFLURANE [Suspect]
     Indication: INDUCTION OF ANAESTHESIA
     Route: 055
  2. PROPOFOL [Suspect]
     Indication: DRUG USE FOR UNKNOWN INDICATION
     Route: 042
  3. ANTIBIOTICS [Concomitant]
     Indication: EAR INFECTION
     Route: 048
  4. RINGER-LACTATE SOLUTION ^FRESENIUS^ [Concomitant]
     Indication: FLUID REPLACEMENT
     Dosage: BOLUS
     Route: 042
  5. ACETAMINOPHEN [Concomitant]
     Indication: PAIN MANAGEMENT
     Route: 054
  6. MIDAZOLAM [Concomitant]
     Indication: PREMEDICATION
     Route: 048
  7. NITROUS OXIDE W/ OXYGEN [Concomitant]
     Indication: INDUCTION OF ANAESTHESIA
     Route: 055
  8. NITROUS OXIDE W/ OXYGEN [Concomitant]
  9. OXYGEN [Concomitant]
     Indication: INDUCTION OF ANAESTHESIA
     Route: 055
  10. OXYGEN [Concomitant]
     Indication: OXYGEN SUPPLEMENTATION
  11. OXYGEN [Concomitant]
  12. GLYCOPYRRONIUM BROMIDE [Concomitant]
     Indication: DRUG USE FOR UNKNOWN INDICATION
     Route: 042
  13. ISOFLURANE [Concomitant]
     Indication: ANAESTHESIA
     Dosage: 0.6 %
  14. ISOFLURANE [Concomitant]
     Dosage: 0.3%
  15. ISOFLURANE [Concomitant]
     Dosage: END TIDAL, 0.15%
  16. BUPIVACAINE [Concomitant]
     Indication: DRUG USE FOR UNKNOWN INDICATION
     Dosage: 0.25%
  17. ROCURONIUM [Concomitant]
     Indication: DRUG USE FOR UNKNOWN INDICATION
  18. MIDAZOLAM [Concomitant]
     Indication: DRUG USE FOR UNKNOWN INDICATION
  19. EPINEPHRINE [Concomitant]
     Indication: DRUG USE FOR UNKNOWN INDICATION
     Dosage: DRIP
     Route: 042
  20. EPINEPHRINE [Concomitant]
     Dosage: DRIP
     Route: 042
  21. NITROGLYCERIN [Concomitant]
     Indication: DRUG USE FOR UNKNOWN INDICATION
     Dosage: DRIP
  22. FENTANYL [Concomitant]
     Indication: DRUG USE FOR UNKNOWN INDICATION
     Dosage: DRIP
  23. NIMBEX [Concomitant]
     Indication: DRUG USE FOR UNKNOWN INDICATION
     Dosage: DRIP

REACTIONS (4)
  - ACIDOSIS [None]
  - BLOOD PRESSURE DIASTOLIC DECREASED [None]
  - CARDIAC ARREST [None]
  - HEMIPARESIS [None]
